FAERS Safety Report 6284629 (Version 3)
Quarter: 2020Q3

REPORT INFORMATION
  Report Type: Report from Study
  Country: DE (occurrence: DE)
  Receive Date: 20070410
  Receipt Date: 20070627
  Transmission Date: 20201105
  Serious: Yes (Other)
  Sender: FDA-Public Use
  Company Number: DE-ROCHE-491578

PATIENT
  Age: 82 Year
  Sex: Male
  Weight: 70 kg

DRUGS (3)
  1. IBANDRONIC ACID. [Suspect]
     Active Substance: IBANDRONIC ACID
     Indication: OSTEOPOROSIS
     Route: 065
     Dates: start: 20060322, end: 20060725
  2. NOVAMINSULFON [Concomitant]
     Indication: PAIN
     Dosage: DOSAGE REGIMEN: PRN.
     Dates: start: 2004, end: 2007
  3. PHENPROCOUMON [Concomitant]
     Active Substance: PHENPROCOUMON
     Dates: end: 2007

REACTIONS (3)
  - Thirst [Recovered/Resolved]
  - Nausea [Recovered/Resolved]
  - Vomiting [Recovered/Resolved]

NARRATIVE: CASE EVENT DATE: 20060330
